FAERS Safety Report 13726016 (Version 2)
Quarter: 2017Q3

REPORT INFORMATION
  Report Type: Spontaneous
  Country: US (occurrence: US)
  Receive Date: 20170706
  Receipt Date: 20170808
  Transmission Date: 20171127
  Serious: Yes (Other)
  Sender: FDA-Public Use
  Company Number: US-SUPERNUS PHARMACEUTICALS, INC.-2017SUP00005

PATIENT
  Age: 50 Year
  Sex: Female
  Weight: 81.18 kg

DRUGS (15)
  1. NEURONTIN [Concomitant]
     Active Substance: GABAPENTIN
     Dosage: 1800 MG, 1X/DAY
     Dates: end: 2017
  2. PROGESTERONE. [Concomitant]
     Active Substance: PROGESTERONE
     Dosage: 100 MG, 1X/DAY
  3. OXTELLAR XR [Suspect]
     Active Substance: OXCARBAZEPINE
     Indication: TRIGEMINAL NERVE DISORDER
     Dosage: 150 MG, 1X/DAY
     Route: 048
     Dates: start: 201704, end: 2017
  4. INTERFERON B [Concomitant]
     Indication: MULTIPLE SCLEROSIS
     Dosage: 1 G, EVERY 48 HOURS
  5. OXTELLAR XR [Suspect]
     Active Substance: OXCARBAZEPINE
     Indication: BRAIN INJURY
     Dosage: 300 MG, 1X/DAY
     Route: 048
     Dates: start: 20170105, end: 2017
  6. DANTRIUM [Concomitant]
     Active Substance: DANTROLENE SODIUM
     Dosage: 25 MG, AS NEEDED
  7. LEXAPRO [Concomitant]
     Active Substance: ESCITALOPRAM OXALATE
     Dosage: 20 MG, 1X/DAY
  8. PHENERGAN [Concomitant]
     Active Substance: PROMETHAZINE HYDROCHLORIDE
     Dosage: 25 MG, 3X/DAY
  9. ATIVAN [Concomitant]
     Active Substance: LORAZEPAM
     Dosage: UNK
     Dates: end: 2017
  10. JINTELI [Suspect]
     Active Substance: ETHINYL ESTRADIOL\NORETHINDRONE ACETATE
  11. OXTELLAR XR [Suspect]
     Active Substance: OXCARBAZEPINE
     Dosage: 75 MG, EVERY 48 HOURS
     Dates: start: 2017, end: 2017
  12. ZANAFLEX [Concomitant]
     Active Substance: TIZANIDINE HYDROCHLORIDE
     Dosage: 6 MG, 3X/DAY
  13. ESTRADIOL PATCH 0.075 [Concomitant]
     Dosage: APPLIED FOR THREE DAYS, THEN ONE ON FOR FOUR DAYS
  14. OXTELLAR XR [Suspect]
     Active Substance: OXCARBAZEPINE
     Indication: HEADACHE
  15. DANTRIUM [Concomitant]
     Active Substance: DANTROLENE SODIUM
     Dosage: 25 MG, 3X/DAY AND AS NEEDED

REACTIONS (23)
  - Seizure [Unknown]
  - Abdominal pain upper [Unknown]
  - Pertussis [Unknown]
  - Abdominal pain [Unknown]
  - Urinary incontinence [Unknown]
  - Malaise [Not Recovered/Not Resolved]
  - Drug dose omission [Unknown]
  - Loss of personal independence in daily activities [Not Recovered/Not Resolved]
  - Body temperature increased [Not Recovered/Not Resolved]
  - Sinusitis [Recovered/Resolved]
  - Dyspnoea [Unknown]
  - Burning sensation [Not Recovered/Not Resolved]
  - Cough [Not Recovered/Not Resolved]
  - Faeces discoloured [Unknown]
  - Headache [Recovered/Resolved]
  - Drug interaction [Unknown]
  - Anxiety [Unknown]
  - Off label use [Unknown]
  - Gastric mucosal lesion [Unknown]
  - Delirium [Unknown]
  - Hyperhidrosis [Not Recovered/Not Resolved]
  - Dysgeusia [Unknown]
  - Oropharyngeal pain [Unknown]

NARRATIVE: CASE EVENT DATE: 2017
